FAERS Safety Report 17210606 (Version 2)
Quarter: 2020Q1

REPORT INFORMATION
  Report Type: Report from Study
  Country: JP (occurrence: JP)
  Receive Date: 20191227
  Receipt Date: 20200113
  Transmission Date: 20200409
  Serious: Yes (Hospitalization)
  Sender: FDA-Public Use
  Company Number: JP-EISAI MEDICAL RESEARCH-EC-2019-067652

PATIENT
  Age: 48 Year
  Sex: Male
  Weight: 62 kg

DRUGS (15)
  1. LENVATINIB [Suspect]
     Active Substance: LENVATINIB
     Indication: THYMIC CANCER METASTATIC
     Route: 048
     Dates: start: 20170525, end: 20170726
  2. THYRADIN S [Concomitant]
     Active Substance: LEVOTHYROXINE SODIUM
  3. LOXOPROFEN [Concomitant]
     Active Substance: LOXOPROFEN
  4. MAGMITT [Concomitant]
     Active Substance: MAGNESIUM OXIDE
  5. AMOXICILLIN. [Concomitant]
     Active Substance: AMOXICILLIN
  6. OXINORM (OXYCODONE HYDROCHLORIDE) [Suspect]
     Active Substance: OXYCODONE HYDROCHLORIDE
     Indication: CANCER PAIN
     Dosage: FREQUENCY UNKNOWN
     Dates: start: 20190507
  7. PURSENNID [Concomitant]
  8. LENVATINIB [Suspect]
     Active Substance: LENVATINIB
     Route: 048
     Dates: start: 20171026, end: 20190710
  9. DEXAN VG [Concomitant]
  10. TAKECAB [Concomitant]
     Active Substance: VONOPRAZAN FUMURATE
  11. PICOSULFATE NA [Concomitant]
     Active Substance: SODIUM PICOSULFATE
  12. LENVATINIB [Suspect]
     Active Substance: LENVATINIB
     Route: 048
     Dates: start: 20170727, end: 20171025
  13. AZILVA [Concomitant]
     Active Substance: AZILSARTAN KAMEDOXOMIL
  14. LENVATINIB [Suspect]
     Active Substance: LENVATINIB
     Route: 048
     Dates: start: 20190711, end: 20191223
  15. METHYLCOBAL [Concomitant]
     Active Substance: METHYLCOBALAMIN

REACTIONS (1)
  - Ileus [Recovering/Resolving]

NARRATIVE: CASE EVENT DATE: 20191222
